FAERS Safety Report 25712019 (Version 6)
Quarter: 2025Q3

REPORT INFORMATION
  Report Type: Spontaneous
  Country: IL (occurrence: IL)
  Receive Date: 20250821
  Receipt Date: 20250917
  Transmission Date: 20251021
  Serious: Yes (Life-Threatening, Hospitalization, Other)
  Sender: PFIZER
  Company Number: IL-PFIZER INC-PV202500100198

PATIENT
  Age: 61 Year
  Sex: Female
  Weight: 94 kg

DRUGS (19)
  1. PALBOCICLIB [Suspect]
     Active Substance: PALBOCICLIB
     Indication: Breast cancer metastatic
     Route: 048
     Dates: start: 202406, end: 202406
  2. PALBOCICLIB [Suspect]
     Active Substance: PALBOCICLIB
     Indication: Metastases to spine
  3. PALBOCICLIB [Suspect]
     Active Substance: PALBOCICLIB
     Indication: Breast cancer recurrent
  4. LETROZOLE [Suspect]
     Active Substance: LETROZOLE
     Indication: Breast cancer metastatic
     Dates: start: 202406
  5. LETROZOLE [Suspect]
     Active Substance: LETROZOLE
     Indication: Metastases to spine
  6. LETROZOLE [Suspect]
     Active Substance: LETROZOLE
     Indication: Breast cancer recurrent
  7. DEXAMETHASONE [Suspect]
     Active Substance: DEXAMETHASONE
     Indication: Breast cancer metastatic
     Dosage: 10 MG, 1X/DAY (ONCE DAILY FOR ONE MONTH, THEN TAPERING OVER ANOTHER MONTH)
     Route: 048
     Dates: start: 202405, end: 202406
  8. DEXAMETHASONE [Suspect]
     Active Substance: DEXAMETHASONE
     Indication: Metastases to spine
     Dosage: 10 MG, 1X/DAY (ONCE DAILY FOR ONE MONTH, THEN TAPERING OVER ANOTHER MONTH)
     Route: 048
     Dates: start: 202406, end: 202407
  9. DEXAMETHASONE [Suspect]
     Active Substance: DEXAMETHASONE
     Indication: Breast cancer recurrent
  10. PREDNISONE [Suspect]
     Active Substance: PREDNISONE
     Indication: Premedication
     Dates: start: 2024
  11. PREDNISONE [Suspect]
     Active Substance: PREDNISONE
     Indication: Lung disorder
     Dosage: 40 MG ONCE DAILY
  12. ASPIRIN [Concomitant]
     Active Substance: ASPIRIN
  13. CLOPIDOGREL [Concomitant]
     Active Substance: CLOPIDOGREL BISULFATE
  14. CANDESARTAN [Concomitant]
     Active Substance: CANDESARTAN
  15. DAPAGLIFLOZIN [Concomitant]
     Active Substance: DAPAGLIFLOZIN
  16. METFORMIN [Concomitant]
     Active Substance: METFORMIN HYDROCHLORIDE
  17. EZETIMIBE [Concomitant]
     Active Substance: EZETIMIBE
  18. ROSUVASTATIN [Concomitant]
     Active Substance: ROSUVASTATIN
  19. INSULIN NOS [Concomitant]
     Active Substance: INSULIN NOS

REACTIONS (10)
  - Cytomegalovirus viraemia [Recovering/Resolving]
  - Acute kidney injury [Recovering/Resolving]
  - Oral candidiasis [Recovering/Resolving]
  - Herpes simplex [Recovering/Resolving]
  - Neutropenia [Recovering/Resolving]
  - Pneumocystis jirovecii pneumonia [Recovering/Resolving]
  - Cell-mediated immune deficiency [Recovering/Resolving]
  - Lymphopenia [Recovering/Resolving]
  - Malaise [Unknown]
  - Diarrhoea [Unknown]

NARRATIVE: CASE EVENT DATE: 20240101
